FAERS Safety Report 8282295-X (Version None)
Quarter: 2012Q2

REPORT INFORMATION
  Report Type: 
  Country: None (occurrence: None)
  Receive Date: 20120413
  Receipt Date: 20120404
  Transmission Date: 20120825
  Serious: Yes (Hospitalization)
  Sender: FDA-Public Use
  Company Number: CA-JNJFOC-20120402412

PATIENT
  Sex: Male
  Weight: 79.3 kg

DRUGS (6)
  1. HYDROMORPH [Concomitant]
  2. IMURAN [Concomitant]
  3. METHADONE HCL [Concomitant]
  4. EFFEXOR [Concomitant]
  5. REMICADE [Suspect]
     Indication: CROHN'S DISEASE
     Route: 042
     Dates: start: 20110110
  6. NORTRIPTYLINE HCL [Concomitant]

REACTIONS (1)
  - NEPHROLITHIASIS [None]
